FAERS Safety Report 8079806-6 (Version None)
Quarter: 2012Q1

REPORT INFORMATION
  Report Type: 
  Country: None (occurrence: None)
  Receive Date: 20120128
  Receipt Date: 20110829
  Transmission Date: 20120608
  Serious: No
  Sender: FDA-Public Use
  Company Number: US-ABBOTT-11P-163-0850618-00

PATIENT
  Sex: Male
  Weight: 97.1 kg

DRUGS (3)
  1. LISINOPRIL [Concomitant]
     Indication: PRODUCT USED FOR UNKNOWN INDICATION
  2. HUMIRA [Suspect]
     Route: 058
     Dates: start: 20110829
  3. HUMIRA [Suspect]
     Indication: PSORIASIS
     Dosage: ONCE
     Route: 058
     Dates: start: 20110822, end: 20110822

REACTIONS (3)
  - PAIN [None]
  - BONE PAIN [None]
  - ARTHRALGIA [None]
